FAERS Safety Report 14183769 (Version 1)
Quarter: 2017Q4

REPORT INFORMATION
  Report Type: Report from Study
  Country: US (occurrence: US)
  Receive Date: 20171113
  Receipt Date: 20171113
  Transmission Date: 20180321
  Serious: Yes (Death, Hospitalization, Other)
  Sender: FDA-Public Use
  Company Number: US-009507513-1710USA010476

PATIENT
  Sex: Male
  Weight: 63.04 kg

DRUGS (4)
  1. BREO ELLIPTA [Suspect]
     Active Substance: FLUTICASONE FUROATE\VILANTEROL TRIFENATATE
     Dosage: THE ONLY ONE CYCLE
     Dates: start: 20170919, end: 20170919
  2. CARBOPLATIN. [Suspect]
     Active Substance: CARBOPLATIN
     Dosage: THE ONLY CYCLE
     Dates: start: 20170919, end: 20170919
  3. ELIQUIS [Concomitant]
     Active Substance: APIXABAN
     Dosage: UNK
  4. KEYTRUDA [Suspect]
     Active Substance: PEMBROLIZUMAB
     Indication: NON-SMALL CELL LUNG CANCER
     Dosage: UNK, EVERY 21 DAYS (THE ONLY CYCLE)
     Route: 042
     Dates: start: 20170919, end: 20170919

REACTIONS (3)
  - Staphylococcal sepsis [Fatal]
  - Acute respiratory failure [Unknown]
  - Device related infection [Unknown]

NARRATIVE: CASE EVENT DATE: 2017
